FAERS Safety Report 17245460 (Version 5)
Quarter: 2020Q2

REPORT INFORMATION
  Report Type: Report from Study
  Country: US (occurrence: US)
  Receive Date: 20200108
  Receipt Date: 20200403
  Transmission Date: 20200713
  Serious: No
  Sender: FDA-Public Use
  Company Number: NVSC2020US001835

PATIENT
  Age: 77 Year
  Sex: Female

DRUGS (2)
  1. BEOVU [Suspect]
     Active Substance: BROLUCIZUMAB-DBLL
     Indication: NEOVASCULAR AGE-RELATED MACULAR DEGENERATION
     Dosage: UNK (ONE SINGLE DOSE VIAL)
     Route: 047
     Dates: start: 20191213
  2. BEOVU [Suspect]
     Active Substance: BROLUCIZUMAB-DBLL
     Dosage: UNK
     Route: 047
     Dates: start: 20200131

REACTIONS (11)
  - Emotional disorder [Unknown]
  - Injection site swelling [Recovered/Resolved]
  - Eye pain [Unknown]
  - Visual impairment [Unknown]
  - Ocular hyperaemia [Recovered/Resolved]
  - Foreign body sensation in eyes [Recovered/Resolved]
  - Feeling abnormal [Unknown]
  - Eye swelling [Unknown]
  - Injection site injury [Unknown]
  - Injection site pain [Unknown]
  - Intra-ocular injection complication [Recovered/Resolved]

NARRATIVE: CASE EVENT DATE: 20191213
